FAERS Safety Report 17957314 (Version 5)
Quarter: 2020Q3

REPORT INFORMATION
  Report Type: Spontaneous
  Country: US (occurrence: US)
  Receive Date: 20200629
  Receipt Date: 20200825
  Transmission Date: 20201103
  Serious: Yes (Other)
  Sender: FDA-Public Use
  Company Number: US-PFIZER INC-2018426207

PATIENT
  Age: 52 Year
  Sex: Female
  Weight: 120.2 kg

DRUGS (2)
  1. DILANTIN [Suspect]
     Active Substance: PHENYTOIN
     Indication: EPILEPSY
     Dosage: TWO CAPSULES IN AM AND THREE CAPSULES AT NIGHT EVERY OTHER DAY, ALTERNATING WITH 2 CAPSULES 2X/DAY
     Route: 048
     Dates: start: 20190318
  2. PHENOBARBITAL. [Concomitant]
     Active Substance: PHENOBARBITAL
     Indication: EPILEPSY
     Dosage: 60 MG, 2X/DAY
     Route: 048

REACTIONS (8)
  - Hemiplegia [Unknown]
  - Osteoarthritis [Unknown]
  - Hypohidrosis [Unknown]
  - Drooling [Unknown]
  - Body height decreased [Unknown]
  - Overweight [Unknown]
  - Intentional product misuse [Unknown]
  - Thyroid disorder [Unknown]
